FAERS Safety Report 19717693 (Version 1)
Quarter: 2021Q3

REPORT INFORMATION
  Report Type: Spontaneous
  Country: US (occurrence: US)
  Receive Date: 20210818
  Receipt Date: 20210818
  Transmission Date: 20211014
  Serious: No
  Sender: FDA-Public Use
  Company Number: US-PFIZER INC-202100993781

PATIENT
  Sex: Female

DRUGS (3)
  1. ZITHROMAX [Suspect]
     Active Substance: AZITHROMYCIN DIHYDRATE
     Indication: EAR INFECTION
     Dosage: 2 DF (FIRST DAY AS NORMAL 2 PILLS (250 MG)
  2. ZITHROMAX [Suspect]
     Active Substance: AZITHROMYCIN DIHYDRATE
     Indication: BRONCHITIS
     Dosage: 1 DF (ON THE SIXTH DAY START THE SECOND PACKAGE ONLY TAKE 1 PILL)
  3. ZITHROMAX [Suspect]
     Active Substance: AZITHROMYCIN DIHYDRATE
     Dosage: ON THE SEVENTH DAY TAKE SECOND DOSE FROM FIRST DAY

REACTIONS (12)
  - Ear discomfort [Unknown]
  - Haemoptysis [Unknown]
  - Ear pain [Unknown]
  - Therapeutic product effect incomplete [Unknown]
  - Balance disorder [Unknown]
  - Sputum discoloured [Unknown]
  - Fatigue [Unknown]
  - Off label use [Unknown]
  - General physical health deterioration [Unknown]
  - Hypersomnia [Unknown]
  - Malaise [Unknown]
  - Product use issue [Unknown]
